FAERS Safety Report 9809660 (Version 5)
Quarter: 2015Q1

REPORT INFORMATION
  Report Type: Spontaneous
  Country: US (occurrence: US)
  Receive Date: 20140110
  Receipt Date: 20150123
  Transmission Date: 20150721
  Serious: Yes (Death, Other)
  Sender: FDA-Public Use
  Company Number: US-SANOFI-AVENTIS-2012SA019935

PATIENT
  Age: 60 Year
  Sex: Male

DRUGS (6)
  1. PLAVIX [Suspect]
     Active Substance: CLOPIDOGREL BISULFATE
     Indication: TRANSIENT ISCHAEMIC ATTACK
     Dosage: START DATE : 01/01/00
     Route: 065
     Dates: start: 20000101, end: 20101108
  2. ASPIRIN. [Suspect]
     Active Substance: ASPIRIN
     Route: 065
  3. PLAVIX [Suspect]
     Active Substance: CLOPIDOGREL BISULFATE
     Indication: PROPHYLAXIS
     Dosage: START DATE : 01/01/00
     Route: 065
     Dates: start: 20000101, end: 20101108
  4. PLAVIX [Suspect]
     Active Substance: CLOPIDOGREL BISULFATE
     Indication: ACUTE CORONARY SYNDROME
     Dosage: START DATE : 01/01/00
     Route: 065
     Dates: start: 20000101, end: 20101108
  5. PLAVIX [Suspect]
     Active Substance: CLOPIDOGREL BISULFATE
     Indication: CEREBROVASCULAR ACCIDENT
     Dosage: START DATE : 01/01/00
     Route: 065
     Dates: start: 20000101, end: 20101108
  6. PLAVIX [Suspect]
     Active Substance: CLOPIDOGREL BISULFATE
     Indication: MYOCARDIAL INFARCTION
     Dosage: START DATE : 01/01/00
     Route: 065
     Dates: start: 20000101, end: 20101108

REACTIONS (7)
  - Myocardial ischaemia [Fatal]
  - Dependence [Fatal]
  - Multiple injuries [Unknown]
  - Ulcer haemorrhage [Recovered/Resolved]
  - Diabetes mellitus [Fatal]
  - Gastrointestinal haemorrhage [Unknown]
  - Sudden cardiac death [Fatal]

NARRATIVE: CASE EVENT DATE: 200903
